FAERS Safety Report 7292305-4 (Version None)
Quarter: 2011Q1

REPORT INFORMATION
  Report Type: 
  Country: None (occurrence: None)
  Receive Date: 20110210
  Receipt Date: 20110210
  Transmission Date: 20110831
  Serious: Yes (Hospitalization)
  Sender: FDA-Public Use
  Company Number: None

PATIENT
  Sex: Male
  Weight: 67.7 kg

DRUGS (5)
  1. CODINE PHOSPHATE [Concomitant]
  2. FENTANYL-100 [Concomitant]
  3. LORAZEPAM [Concomitant]
  4. DILAUDID [Concomitant]
  5. OFATUMUMAB, GSK [Suspect]
     Indication: DISSEMINATED LARGE CELL LYMPHOMA
     Dosage: 1,000 ML WEEKLY IV
     Route: 042
     Dates: start: 20110131

REACTIONS (1)
  - HYPERCALCAEMIA [None]
